FAERS Safety Report 9410791 (Version 1)
Quarter: 2013Q3

REPORT INFORMATION
  Report Type: Spontaneous
  Country: US (occurrence: US)
  Receive Date: 20130719
  Receipt Date: 20130719
  Transmission Date: 20140515
  Serious: Yes (Hospitalization, Other)
  Sender: FDA-Public Use
  Company Number: US-MERCK-1307USA009137

PATIENT
  Age: 47 Year
  Sex: Female

DRUGS (2)
  1. JANUVIA [Suspect]
     Route: 048
  2. CIMZIA [Concomitant]
     Indication: CROHN^S DISEASE
     Dosage: 400 MG, 1X/4WEEKS
     Dates: start: 20120711

REACTIONS (2)
  - Renal failure [Unknown]
  - Pancreatitis [Unknown]
